FAERS Safety Report 7208273-7 (Version None)
Quarter: 2011Q1

REPORT INFORMATION
  Report Type: 
  Country: None (occurrence: None)
  Receive Date: 20110104
  Receipt Date: 20101230
  Transmission Date: 20110831
  Serious: Yes (Other)
  Sender: FDA-Public Use
  Company Number: DE-BRISTOL-MYERS SQUIBB COMPANY-15256464

PATIENT
  Age: 7 Month
  Sex: Male
  Weight: 1 kg

DRUGS (5)
  1. TRUVADA [Suspect]
     Dosage: 1 DF = 300/200MG
     Route: 064
     Dates: end: 20090613
  2. NORVIR [Suspect]
     Route: 064
  3. REYATAZ [Suspect]
     Route: 064
     Dates: end: 20090613
  4. BETAMETHASONE [Concomitant]
     Route: 064
  5. CEFUROXIME [Concomitant]
     Route: 064

REACTIONS (3)
  - BRONCHOPULMONARY DYSPLASIA [None]
  - DEVELOPMENTAL DELAY [None]
  - PATENT DUCTUS ARTERIOSUS [None]
